FAERS Safety Report 9255427 (Version 1)
Quarter: 2013Q2

REPORT INFORMATION
  Report Type: Spontaneous
  Country: US (occurrence: US)
  Receive Date: 20130425
  Receipt Date: 20130425
  Transmission Date: 20140414
  Serious: Yes (Other)
  Sender: FDA-Public Use
  Company Number: US-BRISTOL-MYERS SQUIBB COMPANY-17400466

PATIENT
  Age: 72 Year
  Sex: Female

DRUGS (3)
  1. HYDROXYUREA [Suspect]
     Dates: start: 201301, end: 2013
  2. JAKAFI [Suspect]
     Indication: MYELOFIBROSIS
     Dosage: TABLET
     Route: 048
     Dates: start: 201202, end: 2013
  3. ASPIRIN [Concomitant]
     Dates: end: 2013

REACTIONS (1)
  - Platelet count decreased [Unknown]
